FAERS Safety Report 8386696-0 (Version None)
Quarter: 2012Q2

REPORT INFORMATION
  Report Type: 
  Country: None (occurrence: None)
  Receive Date: 20120525
  Receipt Date: 20120516
  Transmission Date: 20120825
  Serious: Yes (Disabling, Other)
  Sender: FDA-Public Use
  Company Number: FR-EISAI INC-E7273-00297-SPO-FR

PATIENT
  Sex: Male
  Weight: 67 kg

DRUGS (4)
  1. LEVOTHYROXINE SODIUM [Concomitant]
     Route: 048
  2. TARGRETIN [Suspect]
     Indication: MYCOSIS FUNGOIDES
     Route: 048
     Dates: start: 20110301
  3. VALSARTAN [Concomitant]
     Route: 048
  4. FENOFIBRATE [Concomitant]
     Route: 048

REACTIONS (4)
  - APHTHOUS STOMATITIS [None]
  - DEAFNESS [None]
  - VERTIGO [None]
  - TINNITUS [None]
